FAERS Safety Report 16653287 (Version 2)
Quarter: 2019Q3

REPORT INFORMATION
  Report Type: Spontaneous
  Country: GB (occurrence: GB)
  Receive Date: 20190731
  Receipt Date: 20190917
  Transmission Date: 20191004
  Serious: Yes (Other)
  Sender: FDA-Public Use
  Company Number: GB-JNJFOC-20190743502

PATIENT
  Age: 52 Year
  Sex: Male
  Weight: 91 kg

DRUGS (3)
  1. STELARA [Suspect]
     Active Substance: USTEKINUMAB
     Route: 058
     Dates: end: 20190803
  2. STELARA [Suspect]
     Active Substance: USTEKINUMAB
     Indication: PSORIASIS
     Dosage: HAD 2 DOSES OF USTEKINUMAB
     Route: 058
     Dates: start: 20190417, end: 20190803
  3. NAPROXIN                           /00256202/ [Concomitant]
     Indication: PSORIATIC ARTHROPATHY

REACTIONS (1)
  - Lower respiratory tract infection [Unknown]
